FAERS Safety Report 21244538 (Version 3)
Quarter: 2022Q4

REPORT INFORMATION
  Report Type: Spontaneous
  Country: US (occurrence: US)
  Receive Date: 20220823
  Receipt Date: 20221012
  Transmission Date: 20230113
  Serious: Yes (Hospitalization)
  Sender: FDA-Public Use
  Company Number: US-JNJFOC-20220837527

PATIENT
  Age: 81 Year
  Sex: Male

DRUGS (8)
  1. OPSUMIT [Suspect]
     Active Substance: MACITENTAN
     Indication: Pulmonary hypertension
     Route: 048
     Dates: start: 20220803, end: 20220815
  2. POTASSIUM [Concomitant]
     Active Substance: POTASSIUM
  3. ELIQUIS [Concomitant]
     Active Substance: APIXABAN
  4. BUMEX [Concomitant]
     Active Substance: BUMETANIDE
  5. ALLOPURINOL [Concomitant]
     Active Substance: ALLOPURINOL
  6. COLCHICINE [Concomitant]
     Active Substance: COLCHICINE
  7. GABAPENTIN [Concomitant]
     Active Substance: GABAPENTIN
  8. SPIRONOLACTONE [Concomitant]
     Active Substance: SPIRONOLACTONE

REACTIONS (4)
  - Pruritus [Recovered/Resolved]
  - Renal disorder [Recovered/Resolved]
  - Drug ineffective [Unknown]
  - Dyspnoea [Unknown]

NARRATIVE: CASE EVENT DATE: 20220801
